FAERS Safety Report 20850853 (Version 3)
Quarter: 2022Q2

REPORT INFORMATION
  Report Type: Report from Study
  Country: RU (occurrence: RU)
  Receive Date: 20220519
  Receipt Date: 20220601
  Transmission Date: 20220721
  Serious: Yes (Other)
  Sender: FDA-Public Use
  Company Number: RU-TEVA-2022-RU-2037090

PATIENT
  Sex: Female

DRUGS (8)
  1. FLUDARABINE [Suspect]
     Active Substance: FLUDARABINE PHOSPHATE
     Indication: PSTPIP1-associated myeloid-related proteinaemia inflammatory syndrome
     Dosage: 150 MG/M2
     Route: 065
  2. TREOSULFAN [Suspect]
     Active Substance: TREOSULFAN
     Indication: PSTPIP1-associated myeloid-related proteinaemia inflammatory syndrome
     Dosage: 42 G/M2
     Route: 065
  3. Anankinra [Concomitant]
     Indication: PSTPIP1-associated myeloid-related proteinaemia inflammatory syndrome
     Route: 065
  4. ALEMTUZUMAB [Concomitant]
     Active Substance: ALEMTUZUMAB
     Indication: PSTPIP1-associated myeloid-related proteinaemia inflammatory syndrome
     Dosage: 1 MG/KG
     Route: 065
  5. CYCLOSPORINE [Concomitant]
     Active Substance: CYCLOSPORINE
     Indication: PSTPIP1-associated myeloid-related proteinaemia inflammatory syndrome
     Route: 065
  6. INFLIXIMAB [Concomitant]
     Active Substance: INFLIXIMAB
     Indication: PSTPIP1-associated myeloid-related proteinaemia inflammatory syndrome
     Route: 065
  7. MYCOPHENOLATE MOFETIL [Concomitant]
     Active Substance: MYCOPHENOLATE MOFETIL
     Indication: PSTPIP1-associated myeloid-related proteinaemia inflammatory syndrome
     Route: 065
  8. ETANERCEPT [Concomitant]
     Active Substance: ETANERCEPT
     Indication: PSTPIP1-associated myeloid-related proteinaemia inflammatory syndrome
     Route: 065

REACTIONS (8)
  - Systemic inflammatory response syndrome [Recovered/Resolved]
  - Serositis [Recovered/Resolved]
  - Mitral valve incompetence [Recovered/Resolved]
  - Aortic valve incompetence [Recovered/Resolved]
  - Pleural effusion [Recovered/Resolved]
  - Pericardial effusion [Recovered/Resolved]
  - Ascites [Recovered/Resolved]
  - Oedema [Recovered/Resolved]
